FAERS Safety Report 21884613 (Version 2)
Quarter: 2023Q1

REPORT INFORMATION
  Report Type: Spontaneous
  Country: US (occurrence: US)
  Receive Date: 20230119
  Receipt Date: 20230123
  Transmission Date: 20230418
  Serious: No
  Sender: FDA-Public Use
  Company Number: US-PFIZER INC-202300022242

PATIENT
  Age: 29 Year
  Sex: Male
  Weight: 64.86 kg

DRUGS (1)
  1. PRISTIQ EXTENDED-RELEASE [Suspect]
     Active Substance: DESVENLAFAXINE SUCCINATE
     Indication: Anxiety disorder
     Dosage: 25 MG, 2X/DAY (TOOK FIRST DOSE IN MORNING AND THEN SUPPOSED TO TAKE AT NIGHT RIGHT BEFORE BED)
     Dates: start: 2022

REACTIONS (14)
  - Off label use [Unknown]
  - Emotional disorder [Unknown]
  - Dizziness [Unknown]
  - Fatigue [Unknown]
  - Limb discomfort [Unknown]
  - Fear [Not Recovered/Not Resolved]
  - Depression [Unknown]
  - Nausea [Unknown]
  - Withdrawal syndrome [Unknown]
  - Asthenia [Unknown]
  - Nightmare [Not Recovered/Not Resolved]
  - Migraine [Unknown]
  - Sleep disorder [Unknown]
  - Condition aggravated [Unknown]

NARRATIVE: CASE EVENT DATE: 20220101
